FAERS Safety Report 19619152 (Version 1)
Quarter: 2021Q3

REPORT INFORMATION
  Report Type: Spontaneous
  Country: US (occurrence: US)
  Receive Date: 20210728
  Receipt Date: 20210728
  Transmission Date: 20211014
  Serious: No
  Sender: FDA-Public Use
  Company Number: US-ROCHE-2728829

PATIENT
  Sex: Female
  Weight: 61 kg

DRUGS (1)
  1. XELODA [Suspect]
     Active Substance: CAPECITABINE
     Indication: COLORECTAL CANCER
     Dosage: ONGOING: YES
     Route: 048
     Dates: start: 20201127

REACTIONS (2)
  - Product storage error [Unknown]
  - No adverse event [Unknown]
